FAERS Safety Report 21763964 (Version 1)
Quarter: 2022Q4

REPORT INFORMATION
  Report Type: Spontaneous
  Country: CN (occurrence: CN)
  Receive Date: 20221222
  Receipt Date: 20221222
  Transmission Date: 20230113
  Serious: Yes (Other)
  Sender: FDA-Public Use
  Company Number: None

PATIENT
  Age: 62 Year
  Sex: Male
  Weight: 75 kg

DRUGS (2)
  1. CYCLOPHOSPHAMIDE [Suspect]
     Active Substance: CYCLOPHOSPHAMIDE
     Indication: Plasma cell myeloma
     Dosage: 0.4 G, ONCE DAILY, DILUTED WITH 500 ML OF SODIUM CHLORIDE
     Route: 041
     Dates: start: 20221202, end: 20221202
  2. SODIUM CHLORIDE [Suspect]
     Active Substance: SODIUM CHLORIDE
     Indication: Medication dilution
     Dosage: 500 ML, ONCE DAILY, USED TO DILUTE 0.4 G CYCLOPHOSPHAMIDE
     Route: 041
     Dates: start: 20221202, end: 20221202

REACTIONS (2)
  - Myelosuppression [Unknown]
  - Pancytopenia [Unknown]

NARRATIVE: CASE EVENT DATE: 20221213
